FAERS Safety Report 13429879 (Version 1)
Quarter: 2017Q2

REPORT INFORMATION
  Report Type: Spontaneous
  Country: BR (occurrence: BR)
  Receive Date: 20170412
  Receipt Date: 20170412
  Transmission Date: 20170830
  Serious: Yes (Hospitalization, Other)
  Sender: FDA-Public Use
  Company Number: BR-009507513-1704BRA004194

PATIENT
  Age: 44 Year
  Sex: Female
  Weight: 78 kg

DRUGS (3)
  1. NUVARING [Suspect]
     Active Substance: ETHINYL ESTRADIOL\ETONOGESTREL
     Indication: CONTRACEPTION
     Dosage: 1 RING, 3 WEEKS OF USE AND 1 WEEK OF PAUSE
     Route: 067
     Dates: start: 201512
  2. CERAZETTE [Suspect]
     Active Substance: DESOGESTREL
     Indication: PREMENSTRUAL SYNDROME
     Dosage: 75 MICROGRAM (1 TABLET) PER DAY
     Route: 048
     Dates: start: 2005, end: 2008
  3. CERAZETTE [Suspect]
     Active Substance: DESOGESTREL
     Indication: CONTRACEPTION
     Dosage: 75 MICROGRAM (1 TABLET) PER DAY
     Route: 048
     Dates: start: 1995, end: 200306

REACTIONS (4)
  - Abdominoplasty [Recovered/Resolved]
  - Withdrawal bleed [Recovered/Resolved]
  - Incorrect drug administration duration [Unknown]
  - Abnormal withdrawal bleeding [Recovered/Resolved]

NARRATIVE: CASE EVENT DATE: 201512
